FAERS Safety Report 23616544 (Version 1)
Quarter: 2024Q1

REPORT INFORMATION
  Report Type: Spontaneous
  Country: FR (occurrence: FR)
  Receive Date: 20240311
  Receipt Date: 20240311
  Transmission Date: 20240410
  Serious: Yes (Other)
  Sender: FDA-Public Use
  Company Number: None

PATIENT
  Age: 60 Year
  Sex: Female

DRUGS (7)
  1. CARBOPLATIN [Suspect]
     Active Substance: CARBOPLATIN
     Dosage: C1
     Route: 042
     Dates: start: 20231120
  2. CARBOPLATIN [Suspect]
     Active Substance: CARBOPLATIN
     Dosage: C3
     Route: 042
     Dates: start: 20231120
  3. CARBOPLATIN [Suspect]
     Active Substance: CARBOPLATIN
     Indication: Neuroendocrine carcinoma
     Dosage: C2
     Route: 042
     Dates: start: 20231120
  4. IMFINZI [Suspect]
     Active Substance: DURVALUMAB
     Indication: Neuroendocrine carcinoma
     Dosage: C1J1 + C2J1 + C3J1
     Route: 042
     Dates: start: 20231120
  5. ETOPOSIDE [Suspect]
     Active Substance: ETOPOSIDE
     Dosage: C2
     Route: 042
     Dates: start: 20231120
  6. ETOPOSIDE [Suspect]
     Active Substance: ETOPOSIDE
     Indication: Neuroendocrine carcinoma
     Dosage: C3
     Route: 042
     Dates: start: 20231120
  7. ETOPOSIDE [Suspect]
     Active Substance: ETOPOSIDE
     Dosage: C1
     Route: 042
     Dates: start: 20231120

REACTIONS (2)
  - Hypoparathyroidism secondary [Recovering/Resolving]
  - Antibody test positive [Not Recovered/Not Resolved]

NARRATIVE: CASE EVENT DATE: 20231213
